FAERS Safety Report 7300536-X (Version None)
Quarter: 2011Q1

REPORT INFORMATION
  Report Type: 
  Country: None (occurrence: None)
  Receive Date: 20110218
  Receipt Date: 20110208
  Transmission Date: 20110831
  Serious: Yes (Other)
  Sender: FDA-Public Use
  Company Number: FR-AMGEN-FRASP2011008422

PATIENT
  Age: 76 Year
  Sex: Female

DRUGS (1)
  1. ENBREL [Suspect]
     Indication: RHEUMATOID ARTHRITIS
     Dosage: 50 MG, ONCE WEEKLY
     Dates: start: 20101207

REACTIONS (4)
  - DYSPNOEA AT REST [None]
  - PALPITATIONS [None]
  - NOCTURNAL DYSPNOEA [None]
  - MUSCULAR WEAKNESS [None]
